FAERS Safety Report 4354106-6 (Version None)
Quarter: 2004Q2

REPORT INFORMATION
  Report Type: 
  Country: None (occurrence: None)
  Receive Date: 20040430
  Receipt Date: 20040415
  Transmission Date: 20050107
  Serious: Yes (Death, Other)
  Sender: FDA-Public Use
  Company Number: 2004-BP-02573RA

PATIENT
  Age: 62 Year
  Sex: Male

DRUGS (2)
  1. SPIRIVA [Suspect]
     Indication: DYSPNOEA
     Dosage: 18 MCG (18 MCG 18 MCG/D) IH
     Route: 055
     Dates: start: 20031201, end: 20040101
  2. NON-SPECIFIED CHEMOTHERAPY DRUG [Concomitant]

REACTIONS (3)
  - BREAST CANCER [None]
  - CONDITION AGGRAVATED [None]
  - LYMPHANGIOSIS CARCINOMATOSA [None]
